FAERS Safety Report 12708574 (Version 1)
Quarter: 2016Q3

REPORT INFORMATION
  Report Type: Report from Study
  Country: GB (occurrence: GB)
  Receive Date: 20160901
  Receipt Date: 20160901
  Transmission Date: 20161109
  Serious: Yes (Hospitalization)
  Sender: FDA-Public Use
  Company Number: GB-BIOGEN-2015BI128879

PATIENT
  Age: 53 Year
  Sex: Female

DRUGS (2)
  1. TECFIDERA [Suspect]
     Active Substance: DIMETHYL FUMARATE
     Route: 065
     Dates: start: 20150908, end: 20150913
  2. TECFIDERA [Suspect]
     Active Substance: DIMETHYL FUMARATE
     Indication: MULTIPLE SCLEROSIS
     Route: 065
     Dates: start: 20150901, end: 20150907

REACTIONS (6)
  - Abdominal pain upper [Unknown]
  - Chest discomfort [Unknown]
  - Fall [Recovered/Resolved]
  - Pruritus [Unknown]
  - Abdominal tenderness [Unknown]
  - Hot flush [Unknown]

NARRATIVE: CASE EVENT DATE: 20150912
